FAERS Safety Report 25875573 (Version 2)
Quarter: 2025Q4

REPORT INFORMATION
  Report Type: Spontaneous
  Country: US (occurrence: US)
  Receive Date: 20251003
  Receipt Date: 20251114
  Transmission Date: 20260119
  Serious: No
  Sender: ALEXION PHARMACEUTICALS
  Company Number: US-AstraZeneca-CH-00961490A

PATIENT
  Sex: Male

DRUGS (1)
  1. TAGRISSO [Suspect]
     Active Substance: OSIMERTINIB
     Dosage: 80 MILLIGRAM

REACTIONS (4)
  - Skin exfoliation [Unknown]
  - Skin exfoliation [Unknown]
  - Gait disturbance [Unknown]
  - Palmar-plantar erythrodysaesthesia syndrome [Unknown]
